FAERS Safety Report 6904212-4 (Version None)
Quarter: 2010Q3

REPORT INFORMATION
  Report Type: 
  Country: None (occurrence: None)
  Receive Date: 20100804
  Receipt Date: 20090330
  Transmission Date: 20110219
  Serious: Yes (Other)
  Sender: FDA-Public Use
  Company Number: US-PFIZER INC-2009152315

PATIENT
  Sex: Female
  Weight: 88.435 kg

DRUGS (4)
  1. LYRICA [Suspect]
     Indication: NEURALGIA
     Dosage: 75 MG, UNK
     Dates: start: 20081213, end: 20081201
  2. LYRICA [Suspect]
  3. LISINOPRIL [Concomitant]
     Dosage: UNK
  4. MEDROL [Concomitant]

REACTIONS (1)
  - EYELID PTOSIS [None]
